FAERS Safety Report 20713331 (Version 1)
Quarter: 2022Q2

REPORT INFORMATION
  Report Type: Other
  Country: US (occurrence: None)
  Receive Date: 20220415
  Receipt Date: 20220415
  Transmission Date: 20220720
  Serious: Yes (Other)
  Sender: FDA-Public Use
  Company Number: US-ROCHE-3073066

PATIENT
  Sex: Female

DRUGS (1)
  1. XELODA [Suspect]
     Active Substance: CAPECITABINE
     Indication: Breast cancer metastatic
     Dosage: TAKE THREE 500MG TABLETS ALONG WITH THREE 150MG TABLETS (1950MG TOTAL) BY MOUTH TWICE A DAY ON DAYS
     Route: 048

REACTIONS (1)
  - Pneumonia [Unknown]
